FAERS Safety Report 6843987-X (Version None)
Quarter: 2010Q3

REPORT INFORMATION
  Report Type: 
  Country: None (occurrence: None)
  Receive Date: 20100715
  Receipt Date: 20100701
  Transmission Date: 20110219
  Serious: Yes (Other)
  Sender: FDA-Public Use
  Company Number: FR-JNJFOC-20100702966

PATIENT
  Age: 49 Year
  Sex: Female

DRUGS (5)
  1. IXPRIM [Suspect]
     Indication: SINUSITIS
     Route: 048
  2. PRISTINAMYCIN [Suspect]
     Indication: SINUSITIS
     Route: 048
  3. CORTICOSTEROIDS [Concomitant]
     Route: 065
  4. NSAIDS [Concomitant]
     Route: 065
  5. SERUM PHYSIOLOGICAL [Concomitant]
     Route: 065

REACTIONS (3)
  - FATIGUE [None]
  - HEPATITIS [None]
  - HEPATOCELLULAR INJURY [None]
